FAERS Safety Report 5164685-7 (Version None)
Quarter: 2006Q4

REPORT INFORMATION
  Report Type: 
  Country: None (occurrence: None)
  Receive Date: 20061205
  Receipt Date: 20061004
  Transmission Date: 20070319
  Serious: Yes (Death, Life-Threatening, Hospitalization)
  Sender: FDA-Public Use
  Company Number: FR-ELI_LILLY_AND_COMPANY-FR200610000599

PATIENT
  Age: 40 Year
  Sex: Female

DRUGS (7)
  1. XIGRIS [Suspect]
     Route: 065
     Dates: start: 20060717, end: 20060719
  2. CYMEVAN [Concomitant]
     Dates: start: 20060717, end: 20060719
  3. PROGRAF /USA/ [Concomitant]
     Dates: start: 20060714, end: 20060720
  4. BACTRIM [Concomitant]
     Indication: PNEUMOCYSTIS JIROVECI PNEUMONIA
     Dates: start: 20060715, end: 20060717
  5. IMUREL [Concomitant]
     Dates: start: 20060705, end: 20060716
  6. OROKEN [Concomitant]
     Dates: start: 20060704
  7. CORTICOSTEROIDS [Concomitant]
     Indication: PNEUMOCYSTIS JIROVECI PNEUMONIA
     Dates: start: 20060715

REACTIONS (4)
  - BRADYCARDIA [None]
  - MULTI-ORGAN FAILURE [None]
  - RHABDOMYOLYSIS [None]
  - VENTRICULAR TACHYCARDIA [None]
